FAERS Safety Report 15642656 (Version 1)
Quarter: 2018Q4

REPORT INFORMATION
  Report Type: Spontaneous
  Country: US (occurrence: US)
  Receive Date: 20181120
  Receipt Date: 20181120
  Transmission Date: 20190205
  Serious: Yes (Other)
  Sender: FDA-Public Use
  Company Number: None

PATIENT
  Age: 68 Year
  Sex: Female
  Weight: 157.5 kg

DRUGS (22)
  1. LOMOTIL [Concomitant]
     Active Substance: ATROPINE SULFATE\DIPHENOXYLATE HYDROCHLORIDE
  2. NINLARO [Suspect]
     Active Substance: IXAZOMIB CITRATE
     Indication: PLASMA CELL MYELOMA
     Dosage: ?          OTHER FREQUENCY:DAYS 1, 8 AND 15;?
     Route: 048
     Dates: start: 20171220
  3. AZELASTINE. [Concomitant]
     Active Substance: AZELASTINE HYDROCHLORIDE
  4. TYLENOL PM [Concomitant]
     Active Substance: ACETAMINOPHEN\DIPHENHYDRAMINE
  5. MAGNESIUM [Concomitant]
     Active Substance: MAGNESIUM
  6. HYDROCORTISONE. [Concomitant]
     Active Substance: HYDROCORTISONE
  7. ASACOL [Concomitant]
     Active Substance: MESALAMINE
  8. TRADJENDA [Concomitant]
  9. ALBUTEROL. [Concomitant]
     Active Substance: ALBUTEROL
  10. WELCHOL [Concomitant]
     Active Substance: COLESEVELAM HYDROCHLORIDE
  11. REVLIMID [Concomitant]
     Active Substance: LENALIDOMIDE
  12. GRANISETRON [Concomitant]
     Active Substance: GRANISETRON
  13. BIOTIN 5000 [Concomitant]
  14. MINOXIDIL. [Concomitant]
     Active Substance: MINOXIDIL
  15. PROCHLORPERAZINE. [Concomitant]
     Active Substance: PROCHLORPERAZINE
  16. PSYLLIUM HUSK. [Concomitant]
     Active Substance: PSYLLIUM HUSK
  17. LEVOTHYROXINE. [Concomitant]
     Active Substance: LEVOTHYROXINE
  18. DEXAMETHASONE. [Concomitant]
     Active Substance: DEXAMETHASONE
  19. ACYCLOVIR. [Concomitant]
     Active Substance: ACYCLOVIR
  20. TORSEMIDE. [Concomitant]
     Active Substance: TORSEMIDE
  21. CLOTRIMAZOLE AF [Concomitant]
  22. GLIMEPIRIDE. [Concomitant]
     Active Substance: GLIMEPIRIDE

REACTIONS (1)
  - Hypoaesthesia [None]
